FAERS Safety Report 6038236-9 (Version None)
Quarter: 2009Q1

REPORT INFORMATION
  Report Type: 
  Country: None (occurrence: None)
  Receive Date: 20090115
  Receipt Date: 20090108
  Transmission Date: 20090719
  Serious: Yes (Other)
  Sender: FDA-Public Use
  Company Number: US-TYCO HEALTHCARE/MALLINCKRODT-T200802176

PATIENT
  Age: 75 Year
  Sex: Female

DRUGS (1)
  1. OPTIRAY 300 [Suspect]
     Indication: COMPUTERISED TOMOGRAM
     Dosage: 100 ML, SINGLE
     Dates: start: 20081215, end: 20081215

REACTIONS (5)
  - ERYTHEMA [None]
  - FOAMING AT MOUTH [None]
  - MALAISE [None]
  - SYNCOPE [None]
  - VOMITING [None]
